FAERS Safety Report 23749727 (Version 1)
Quarter: 2024Q2

REPORT INFORMATION
  Report Type: Spontaneous
  Country: GB (occurrence: GB)
  Receive Date: 20240416
  Receipt Date: 20240416
  Transmission Date: 20240715
  Serious: No
  Sender: FDA-Public Use
  Company Number: None

PATIENT
  Age: 89 Year
  Sex: Male
  Weight: 91 kg

DRUGS (11)
  1. RANOLAZINE [Suspect]
     Active Substance: RANOLAZINE
     Indication: Ill-defined disorder
     Dosage: 1 DF, QD
     Route: 048
     Dates: start: 20240304
  2. EDOXABAN [Concomitant]
     Active Substance: EDOXABAN
     Indication: Ill-defined disorder
     Dosage: 1 DF, QD
     Route: 065
     Dates: start: 20230424
  3. ALFACALCIDOL [Concomitant]
     Active Substance: ALFACALCIDOL
     Indication: Ill-defined disorder
     Dosage: 1 DF, QD
     Route: 065
     Dates: start: 20231214, end: 20240113
  4. ALLOPURINOL [Concomitant]
     Active Substance: ALLOPURINOL
     Indication: Ill-defined disorder
     Dosage: 2DF, QD
     Route: 065
     Dates: start: 20230322
  5. ATORVASTATIN [Concomitant]
     Active Substance: ATORVASTATIN
     Indication: Ill-defined disorder
     Dosage: 1 DF, QD
     Route: 065
     Dates: start: 20230322
  6. BISOPROLOL [Concomitant]
     Active Substance: BISOPROLOL\BISOPROLOL FUMARATE
     Indication: Ill-defined disorder
     Dosage: 1 DF, QD
     Route: 065
     Dates: start: 20231213
  7. BUMETANIDE [Concomitant]
     Active Substance: BUMETANIDE
     Indication: Ill-defined disorder
     Route: 065
     Dates: start: 20231103
  8. FERROUS FUMARATE [Concomitant]
     Active Substance: FERROUS FUMARATE
     Indication: Ill-defined disorder
     Dosage: 1 DF, QD
     Route: 065
     Dates: start: 20230322
  9. NITROGLYCERIN [Concomitant]
     Active Substance: NITROGLYCERIN
     Indication: Ill-defined disorder
     Route: 065
     Dates: start: 20240222
  10. Ispahula Husk [Concomitant]
     Indication: Ill-defined disorder
     Dosage: 1 DF, BID
     Route: 065
     Dates: start: 20230322
  11. TAMSULOSIN HYDROCHLORIDE [Concomitant]
     Active Substance: TAMSULOSIN HYDROCHLORIDE
     Indication: Ill-defined disorder
     Dosage: 1 DF, QD
     Route: 065
     Dates: start: 20230322

REACTIONS (2)
  - Constipation [Recovered/Resolved]
  - Product use in unapproved indication [Unknown]

NARRATIVE: CASE EVENT DATE: 20240304
